FAERS Safety Report 9716287 (Version 1)
Quarter: 2013Q4

REPORT INFORMATION
  Report Type: Spontaneous
  Country: US (occurrence: None)
  Receive Date: 20131126
  Receipt Date: 20131126
  Transmission Date: 20140711
  Serious: Yes (Hospitalization)
  Sender: FDA-Public Use
  Company Number: None

PATIENT
  Sex: 0

DRUGS (1)
  1. MELOXICAM [Suspect]
     Indication: ARTHRITIS
     Route: 048
     Dates: start: 20130516, end: 20131103

REACTIONS (1)
  - Gastric haemorrhage [None]
